FAERS Safety Report 13608797 (Version 2)
Quarter: 2017Q2

REPORT INFORMATION
  Report Type: Spontaneous
  Country: US (occurrence: US)
  Receive Date: 20170602
  Receipt Date: 20170607
  Transmission Date: 20170830
  Serious: No
  Sender: FDA-Public Use
  Company Number: US-LEXICON PHARMACEUTICALS, INC-17-1606-00214

PATIENT
  Age: 64 Year
  Sex: Male

DRUGS (14)
  1. SIMVASTATIN. [Concomitant]
     Active Substance: SIMVASTATIN
  2. K-TAB [Concomitant]
     Active Substance: POTASSIUM CHLORIDE
  3. MUCINEX [Concomitant]
     Active Substance: GUAIFENESIN
  4. PROTONIX [Concomitant]
     Active Substance: PANTOPRAZOLE SODIUM
  5. CYANOCOBALAMIN. [Concomitant]
     Active Substance: CYANOCOBALAMIN
  6. COMPAZINE [Concomitant]
     Active Substance: PROCHLORPERAZINE MALEATE
  7. MELOXICAM. [Concomitant]
     Active Substance: MELOXICAM
  8. IRON [Concomitant]
     Active Substance: IRON
  9. VITAMIN D [Concomitant]
     Active Substance: CHOLECALCIFEROL
  10. MAGNESIUM [Concomitant]
     Active Substance: MAGNESIUM
  11. SANDOSTATIN [Concomitant]
     Active Substance: OCTREOTIDE ACETATE
  12. TELOTRISTAT ETHYL [Suspect]
     Active Substance: TELOTRISTAT ETHYL
     Indication: CARCINOID SYNDROME
     Route: 048
     Dates: start: 20170325
  13. CALCIUM [Concomitant]
     Active Substance: CALCIUM
  14. LIDOCAINE. [Concomitant]
     Active Substance: LIDOCAINE

REACTIONS (1)
  - Nausea [Unknown]

NARRATIVE: CASE EVENT DATE: 20170401
